FAERS Safety Report 6506670-6 (Version None)
Quarter: 2009Q4

REPORT INFORMATION
  Report Type: 
  Country: None (occurrence: None)
  Receive Date: 20091216
  Receipt Date: 20091210
  Transmission Date: 20100525
  Serious: Yes (Hospitalization)
  Sender: FDA-Public Use
  Company Number: 20097775

PATIENT
  Sex: Male

DRUGS (3)
  1. LIORESAL [Suspect]
     Indication: MUSCLE SPASTICITY
     Dosage: DAILY, INTRATHECAL
     Route: 037
  2. MORPHINE [Concomitant]
  3. BUPIVACAINE [Concomitant]

REACTIONS (9)
  - CHEST DISCOMFORT [None]
  - DIZZINESS [None]
  - HEADACHE [None]
  - LOSS OF CONSCIOUSNESS [None]
  - OVERDOSE [None]
  - PALPITATIONS [None]
  - PANIC ATTACK [None]
  - SWELLING [None]
  - WRONG TECHNIQUE IN DRUG USAGE PROCESS [None]
